FAERS Safety Report 8992170 (Version 2)
Quarter: 2013Q1

REPORT INFORMATION
  Report Type: Report from Study
  Country: CA (occurrence: CA)
  Receive Date: 20121231
  Receipt Date: 20130129
  Transmission Date: 20140127
  Serious: Yes (Other)
  Sender: FDA-Public Use
  Company Number: CA-ROCHE-1173098

PATIENT
  Sex: Male
  Weight: 95.11 kg

DRUGS (5)
  1. OMALIZUMAB [Suspect]
     Indication: ASTHMA
     Dosage: 375 MG, UNK
     Route: 058
     Dates: start: 20070207
  2. OMALIZUMAB [Suspect]
     Dosage: 300 MG, 1/MONTH
     Route: 058
     Dates: start: 20070207
  3. OMALIZUMAB [Suspect]
     Dosage: 300 MG, 1/MONTH
     Route: 058
     Dates: start: 20090902
  4. OMALIZUMAB [Suspect]
     Dosage: 300 MG, 1/MONTH
     Route: 058
     Dates: start: 20100317
  5. OMALIZUMAB [Suspect]
     Route: 058
     Dates: start: 20090401

REACTIONS (16)
  - Nasal polyps [Unknown]
  - Respiratory tract infection [Unknown]
  - Productive cough [Unknown]
  - Upper respiratory tract infection [Unknown]
  - Dyspnoea [Recovering/Resolving]
  - Nasopharyngitis [Unknown]
  - Lung infection [Unknown]
  - Cough [Unknown]
  - Wheezing [Unknown]
  - Nasal congestion [Recovering/Resolving]
  - Eye pruritus [Unknown]
  - Ear pain [Unknown]
  - Dysphonia [Unknown]
  - Bronchitis [Unknown]
  - Myalgia [Unknown]
  - Sputum abnormal [Unknown]
